FAERS Safety Report 21307477 (Version 2)
Quarter: 2022Q4

REPORT INFORMATION
  Report Type: Spontaneous
  Country: US (occurrence: US)
  Receive Date: 20220908
  Receipt Date: 20221213
  Transmission Date: 20230113
  Serious: No
  Sender: FDA-Public Use
  Company Number: US-PFIZER INC-PV202200059095

PATIENT
  Age: 69 Year
  Sex: Male

DRUGS (1)
  1. RETACRIT [Suspect]
     Active Substance: EPOETIN ALFA-EPBX
     Indication: Anaemia
     Dosage: 10000 IU, WEEKLY, (FREQUENCY: EVERY 7 DAYS)

REACTIONS (2)
  - Therapy cessation [Unknown]
  - Off label use [Unknown]
